FAERS Safety Report 10055580 (Version 1)
Quarter: 2014Q2

REPORT INFORMATION
  Report Type: Spontaneous
  Country: US (occurrence: None)
  Receive Date: 20140402
  Receipt Date: 20140402
  Transmission Date: 20141212
  Serious: Yes (Disabling)
  Sender: FDA-Public Use
  Company Number: None

PATIENT
  Age: 64 Year
  Sex: Female
  Weight: 74.84 kg

DRUGS (1)
  1. OXYCODONE/ACETAMINOPHIN [Suspect]
     Indication: PAIN
     Dosage: 1 EVERY 3-4 HRS PRN UP TO 8DAY, AS NEEDED, TAKEN BY MOUTH
     Dates: start: 20140314, end: 20140401

REACTIONS (7)
  - Nausea [None]
  - Somnolence [None]
  - Abdominal pain upper [None]
  - Decreased appetite [None]
  - Drug ineffective [None]
  - Product substitution issue [None]
  - Product quality issue [None]
